FAERS Safety Report 20454837 (Version 1)
Quarter: 2022Q1

REPORT INFORMATION
  Report Type: Spontaneous
  Country: NO (occurrence: NO)
  Receive Date: 20220210
  Receipt Date: 20220210
  Transmission Date: 20220423
  Serious: Yes (Disabling, Other)
  Sender: FDA-Public Use
  Company Number: None

PATIENT
  Age: 59 Year
  Sex: Male
  Weight: 100 kg

DRUGS (2)
  1. NEURONTIN [Suspect]
     Active Substance: GABAPENTIN
     Indication: Neuralgia
     Dosage: 600 MG, 3X/DAY (EVERY 8 HOURS)
     Route: 048
     Dates: start: 202107, end: 202107
  2. PRAMIPEXOLE [Concomitant]
     Active Substance: PRAMIPEXOLE
     Indication: Restless legs syndrome
     Dosage: 5 TABLETS DAILY
     Dates: start: 202106

REACTIONS (9)
  - Peripheral swelling [Not Recovered/Not Resolved]
  - Sudden onset of sleep [Unknown]
  - Hallucination, visual [Unknown]
  - Feeling abnormal [Unknown]
  - Depersonalisation/derealisation disorder [Unknown]
  - Personality change [Recovering/Resolving]
  - Limb injury [Unknown]
  - Somnolence [Unknown]
  - Confusional state [Recovered/Resolved]

NARRATIVE: CASE EVENT DATE: 20210701
